FAERS Safety Report 8989694 (Version 1)
Quarter: 2012Q4

REPORT INFORMATION
  Report Type: 
  Country: US (occurrence: US)
  Receive Date: 20121227
  Receipt Date: 20121227
  Transmission Date: 20130627
  Serious: No
  Sender: FDA-Public Use
  Company Number: US-ASTRAZENECA-2012SE93553

PATIENT
  Age: 74 Year
  Sex: Female
  Weight: 79.4 kg

DRUGS (3)
  1. PULMICORT FLEXHALER [Suspect]
     Indication: ASTHMA
     Dosage: 180 mcg 2 puff, bid
     Route: 055
     Dates: start: 2000
  2. THYROXINE [Concomitant]
     Indication: ASTHMA
  3. SEREVENT [Concomitant]
     Indication: ASTHMA

REACTIONS (1)
  - Dyspnoea [Unknown]
